FAERS Safety Report 8906250 (Version 1)
Quarter: 2012Q4

REPORT INFORMATION
  Report Type: Spontaneous
  Country: US (occurrence: None)
  Receive Date: 20121106
  Receipt Date: 20121106
  Transmission Date: 20130627
  Serious: Yes (Other)
  Sender: FDA-Public Use
  Company Number: JPI-P-025812

PATIENT
  Age: 70 Year
  Sex: Male
  Weight: 125.65 kg

DRUGS (12)
  1. XYREM (500 MILLIGRAM/MILLILITERS, SOLUTION)(SODIUM OXYBATE) [Suspect]
     Indication: DAYTIME SLEEPINESS
     Dosage: (2.25 GM, 2 IN 1 D)
     Route: 048
     Dates: start: 20120926, end: 2012
  2. XYREM (500 MILLIGRAM/MILLILITERS, SOLUTION)(SODIUM OXYBATE) [Suspect]
     Indication: SLEEP DISTURBANCE
     Dosage: (2.25 GM, 2 IN 1 D)
     Route: 048
     Dates: start: 20120926, end: 2012
  3. XYREM (500 MILLIGRAM/MILLILITERS, SOLUTION)(SODIUM OXYBATE) [Suspect]
     Indication: DAYTIME SLEEPINESS
     Dosage: (3 GM, 2 IN 1 D)
     Route: 048
     Dates: start: 20121008, end: 201210
  4. XYREM (500 MILLIGRAM/MILLILITERS, SOLUTION)(SODIUM OXYBATE) [Suspect]
     Indication: SLEEP DISTURBANCE
     Dosage: (3 GM, 2 IN 1 D)
     Route: 048
     Dates: start: 20121008, end: 201210
  5. XYREM (500 MILLIGRAM/MILLILITERS, SOLUTION)(SODIUM OXYBATE) [Suspect]
     Indication: DAYTIME SLEEPINESS
     Dosage: (3 GM, 2 IN 1 D)
     Route: 048
     Dates: start: 201210
  6. XYREM (500 MILLIGRAM/MILLILITERS, SOLUTION)(SODIUM OXYBATE) [Suspect]
     Indication: SLEEP DISTURBANCE
     Dosage: (3 GM, 2 IN 1 D)
     Route: 048
     Dates: start: 201210
  7. ARMOUR THYROID [Concomitant]
  8. AZELASTINE HYDROCHLORIDE [Concomitant]
  9. WARFARIN SODIUM [Concomitant]
  10. LIOTHYRONINE SODIUM (CYTOMEL)  LOSARTAN POTASSIUM  MONTELUKAST SODIUM 1) [Concomitant]
  11. LOSARTAN POTASSIUM [Concomitant]
  12. MONTELUKAST SODIUM [Concomitant]

REACTIONS (5)
  - Supraventricular tachycardia [None]
  - Dizziness [None]
  - Hyperhidrosis [None]
  - Atrial flutter [None]
  - Pollakiuria [None]
